FAERS Safety Report 5022009-X (Version None)
Quarter: 2006Q2

REPORT INFORMATION
  Report Type: 
  Country: None (occurrence: None)
  Receive Date: 20060609
  Receipt Date: 20060605
  Transmission Date: 20061013
  Serious: Yes (Other)
  Sender: FDA-Public Use
  Company Number: TR-AVENTIS-200615963GDDC

PATIENT
  Sex: Female

DRUGS (1)
  1. KETEK [Suspect]
     Indication: BRONCHITIS
     Route: 048
     Dates: start: 20060428, end: 20060428

REACTIONS (6)
  - ANAPHYLACTIC SHOCK [None]
  - BRONCHOSPASM [None]
  - DIZZINESS [None]
  - PAIN IN EXTREMITY [None]
  - TREMOR [None]
  - VISION BLURRED [None]
